FAERS Safety Report 8426086-5 (Version None)
Quarter: 2012Q2

REPORT INFORMATION
  Report Type: 
  Country: None (occurrence: None)
  Receive Date: 20120611
  Receipt Date: 20120529
  Transmission Date: 20120825
  Serious: Yes (Other)
  Sender: FDA-Public Use
  Company Number: US-ELI_LILLY_AND_COMPANY-US201205010512

PATIENT
  Age: 49 Year

DRUGS (4)
  1. CYMBALTA [Suspect]
     Indication: MAJOR DEPRESSION
     Dosage: 30 MG, UNKNOWN
  2. CYMBALTA [Suspect]
     Dosage: 90 MG, UNKNOWN
  3. CYMBALTA [Suspect]
     Dosage: 120 MG, UNKNOWN
  4. CYMBALTA [Suspect]
     Dosage: 60 MG, UNKNOWN

REACTIONS (3)
  - INTRAOCULAR PRESSURE INCREASED [None]
  - OFF LABEL USE [None]
  - BLINDNESS [None]
